FAERS Safety Report 17298337 (Version 2)
Quarter: 2020Q1

REPORT INFORMATION
  Report Type: Spontaneous
  Country: US (occurrence: US)
  Receive Date: 20200122
  Receipt Date: 20200128
  Transmission Date: 20200409
  Serious: Yes (Hospitalization, Other)
  Sender: FDA-Public Use
  Company Number: US-VISTAPHARM, INC.-VER202001-000105

PATIENT
  Age: 34 Year
  Sex: Female

DRUGS (8)
  1. CEFIXIME. [Concomitant]
     Active Substance: CEFIXIME
     Indication: ATYPICAL PNEUMONIA
  2. METHYLPREDNISOLONE. [Concomitant]
     Active Substance: METHYLPREDNISOLONE
     Indication: ATYPICAL PNEUMONIA
  3. AMITRIPTYLINE [Concomitant]
     Active Substance: AMITRIPTYLINE
     Indication: PRODUCT USED FOR UNKNOWN INDICATION
     Dosage: 10 MG DAILY
  4. ALBUTEROL. [Suspect]
     Active Substance: ALBUTEROL
     Indication: ATYPICAL PNEUMONIA
     Dosage: 2.5 MG (IN THE OFFICE)
  5. ALBUTEROL. [Suspect]
     Active Substance: ALBUTEROL
     Indication: BRONCHITIS
     Dosage: TWO PUFFS (90 MG PER INHALATION) (AFTER RETURNING HOME)
  6. FLUOXETINE [Concomitant]
     Active Substance: FLUOXETINE HYDROCHLORIDE
     Indication: PRODUCT USED FOR UNKNOWN INDICATION
     Dosage: 20 MG DAILY
  7. CEFIXIME. [Concomitant]
     Active Substance: CEFIXIME
     Indication: BRONCHITIS
     Dosage: 400 MG DAILY
     Route: 048
  8. METHYLPREDNISOLONE. [Concomitant]
     Active Substance: METHYLPREDNISOLONE
     Indication: BRONCHITIS
     Dosage: 4 MG DOSE PACK

REACTIONS (2)
  - Familial periodic paralysis [Recovering/Resolving]
  - Condition aggravated [Recovering/Resolving]
